FAERS Safety Report 13777177 (Version 1)
Quarter: 2017Q3

REPORT INFORMATION
  Report Type: Spontaneous
  Country: US (occurrence: US)
  Receive Date: 20170721
  Receipt Date: 20170721
  Transmission Date: 20171127
  Serious: Yes (Hospitalization, Other)
  Sender: FDA-Public Use
  Company Number: None

PATIENT
  Age: 26 Year
  Sex: Female

DRUGS (2)
  1. JADENU [Suspect]
     Active Substance: DEFERASIROX
     Indication: IRON OVERLOAD
     Route: 048
     Dates: start: 20170428
  2. JADENU [Suspect]
     Active Substance: DEFERASIROX
     Indication: HAEMOGLOBIN C DISEASE
     Route: 048
     Dates: start: 20170428

REACTIONS (2)
  - Drug dose omission [None]
  - Hospitalisation [None]
